FAERS Safety Report 8996835 (Version 1)
Quarter: 2012Q4

REPORT INFORMATION
  Report Type: Spontaneous
  Country: US (occurrence: None)
  Receive Date: 20121228
  Receipt Date: 20121228
  Transmission Date: 20130627
  Serious: No
  Sender: FDA-Public Use
  Company Number: None

PATIENT
  Sex: Female
  Weight: 72.12 kg

DRUGS (1)
  1. CYCLOBENZAPRINE [Suspect]
     Dosage: 10mg 3xqd  nightime  8qh
11/08   11/09  11/10

REACTIONS (1)
  - Hunger [None]
